FAERS Safety Report 23804478 (Version 1)
Quarter: 2024Q2

REPORT INFORMATION
  Report Type: Spontaneous
  Country: US (occurrence: None)
  Receive Date: 20240501
  Receipt Date: 20240501
  Transmission Date: 20240716
  Serious: Yes (Hospitalization)
  Sender: FDA-Public Use
  Company Number: None

PATIENT
  Age: 73 Year
  Sex: Male
  Weight: 99 kg

DRUGS (1)
  1. CEFPODOXIME PROXETIL [Suspect]
     Active Substance: CEFPODOXIME PROXETIL
     Indication: Urinary tract infection
     Dosage: FREQUENCY : TWICE A DAY;?
     Route: 048
     Dates: end: 20230124

REACTIONS (1)
  - Rash [None]

NARRATIVE: CASE EVENT DATE: 20221223
